FAERS Safety Report 22095807 (Version 1)
Quarter: 2023Q1

REPORT INFORMATION
  Report Type: Spontaneous
  Country: CN (occurrence: CN)
  Receive Date: 20230314
  Receipt Date: 20230314
  Transmission Date: 20230417
  Serious: Yes (Hospitalization, Other)
  Sender: FDA-Public Use
  Company Number: CN-STRIDES ARCOLAB LIMITED-2023SP003817

PATIENT
  Age: 63 Year
  Sex: Male

DRUGS (9)
  1. PRAMIPEXOLE DIHYDROCHLORIDE [Suspect]
     Active Substance: PRAMIPEXOLE DIHYDROCHLORIDE
     Indication: Visual impairment
     Dosage: 0.375 MILLIGRAM PER DAY
     Route: 065
  2. PRAMIPEXOLE DIHYDROCHLORIDE [Suspect]
     Active Substance: PRAMIPEXOLE DIHYDROCHLORIDE
     Indication: Parkinson^s disease
     Dosage: 0.75 MILLIGRAM PER DAY
     Route: 065
  3. PRAMIPEXOLE DIHYDROCHLORIDE [Suspect]
     Active Substance: PRAMIPEXOLE DIHYDROCHLORIDE
     Dosage: 0.375 MILLIGRAM PER DAY; ONE MONTH AFTER THE SURGERY
     Route: 065
  4. ENTACAPONE [Suspect]
     Active Substance: ENTACAPONE
     Indication: Visual impairment
     Dosage: 0.4 MILLIGRAM PER DAY
     Route: 065
  5. ENTACAPONE [Suspect]
     Active Substance: ENTACAPONE
     Indication: Parkinson^s disease
     Dosage: 0.2 MILLIGRAM PER DAY
     Route: 065
  6. BENSERAZIDE HYDROCHLORIDE\LEVODOPA [Suspect]
     Active Substance: BENSERAZIDE HYDROCHLORIDE\LEVODOPA
     Indication: Visual impairment
     Dosage: 187.5 MILLIGRAM PER DAY
     Route: 065
  7. BENSERAZIDE HYDROCHLORIDE\LEVODOPA [Suspect]
     Active Substance: BENSERAZIDE HYDROCHLORIDE\LEVODOPA
     Indication: Parkinson^s disease
     Dosage: 625 MILLIGRAM PER DAY
     Route: 065
  8. BENSERAZIDE HYDROCHLORIDE\LEVODOPA [Suspect]
     Active Substance: BENSERAZIDE HYDROCHLORIDE\LEVODOPA
     Dosage: 375 MILLIGRAM PER DAY; ONE MONTH AFTER THE SURGERY
     Route: 065
  9. BENSERAZIDE HYDROCHLORIDE\LEVODOPA [Suspect]
     Active Substance: BENSERAZIDE HYDROCHLORIDE\LEVODOPA
     Dosage: UNK; DOSE INCREASED
     Route: 065

REACTIONS (4)
  - Visual impairment [Recovered/Resolved]
  - Rebound effect [Recovered/Resolved]
  - Dyskinesia [Unknown]
  - Off label use [Unknown]
